FAERS Safety Report 8730257 (Version 9)
Quarter: 2013Q1

REPORT INFORMATION
  Report Type: Spontaneous
  Country: US (occurrence: US)
  Receive Date: 20120817
  Receipt Date: 20130131
  Transmission Date: 20140127
  Serious: Yes (Hospitalization, Disabling, Other)
  Sender: FDA-Public Use
  Company Number: US-009507513-1207USA000391

PATIENT
  Sex: Female

DRUGS (5)
  1. FOSAMAX [Suspect]
     Indication: OSTEOPOROSIS
     Dosage: 10 MG, QD
     Route: 048
     Dates: start: 199712, end: 200009
  2. FOSAMAX [Suspect]
     Dosage: 70 MG, UNK
     Route: 048
     Dates: start: 20030203, end: 20101005
  3. BONIVA [Suspect]
     Indication: OSTEOPOROSIS
     Dosage: 150 MG, UNK
     Dates: start: 20060726, end: 200903
  4. MIACALCIN [Concomitant]
     Indication: OSTEOPOROSIS
     Dosage: UNK
     Dates: start: 20000420
  5. CALCIUM (UNSPECIFIED) [Concomitant]
     Indication: OSTEOPOROSIS
     Dosage: 500 MG, TID
     Dates: start: 19971223

REACTIONS (30)
  - Open reduction of fracture [Unknown]
  - Hip fracture [Unknown]
  - Open reduction of fracture [Unknown]
  - Fibrocystic breast disease [Unknown]
  - Femur fracture [Unknown]
  - Hepatitis C [Unknown]
  - Femur fracture [Unknown]
  - Foreign body [Unknown]
  - Fall [Unknown]
  - Depression [Not Recovered/Not Resolved]
  - Anxiety [Not Recovered/Not Resolved]
  - Impaired healing [Unknown]
  - Hypercalciuria [Recovering/Resolving]
  - Local reaction [Unknown]
  - Dermatitis contact [Unknown]
  - Osteoarthritis [Unknown]
  - Anaemia [Unknown]
  - Gait disturbance [Unknown]
  - Muscle strain [Unknown]
  - Meniscus injury [Unknown]
  - Osteoarthritis [Not Recovered/Not Resolved]
  - Arthritis [Not Recovered/Not Resolved]
  - Patellofemoral pain syndrome [Unknown]
  - Micturition urgency [Unknown]
  - Large intestine polyp [Unknown]
  - Dysuria [Unknown]
  - Pollakiuria [Unknown]
  - Treatment noncompliance [Unknown]
  - Nervousness [Unknown]
  - Drug ineffective [Unknown]
